FAERS Safety Report 5277532-X (Version None)
Quarter: 2007Q1

REPORT INFORMATION
  Report Type: 
  Country: None (occurrence: None)
  Receive Date: 20070327
  Receipt Date: 20070315
  Transmission Date: 20070707
  Serious: Yes (Death)
  Sender: FDA-Public Use
  Company Number: FR-ROCHE-488333

PATIENT
  Age: 60 Year
  Sex: Female

DRUGS (4)
  1. XELODA [Suspect]
     Indication: DRUG USE FOR UNKNOWN INDICATION
     Dosage: THE DOSE WAS REPORTED AS ^1250 MG/M2 TWICE^. THE FIRST CYCLE HAD A WEEK OF DISCONTINUATION FOLLOWIN+
     Route: 065
     Dates: start: 20070115
  2. XELODA [Suspect]
     Dosage: REPORTED THAT THE PATIENT WAS HOSPITALISED DURING THE BEGINING OF CYCLE 2.
     Route: 065
  3. TAMOXIFEN CITRATE [Concomitant]
  4. TAXOTERE [Concomitant]

REACTIONS (4)
  - DEHYDRATION [None]
  - DIARRHOEA [None]
  - RENAL FAILURE [None]
  - VOMITING [None]
